FAERS Safety Report 8329628-3 (Version None)
Quarter: 2012Q2

REPORT INFORMATION
  Report Type: 
  Country: None (occurrence: None)
  Receive Date: 20120502
  Receipt Date: 20120417
  Transmission Date: 20120825
  Serious: Yes (Other)
  Sender: FDA-Public Use
  Company Number: PHHY2012FR035177

PATIENT
  Age: 31 Year
  Sex: Male

DRUGS (1)
  1. ILARIS [Suspect]
     Indication: MUCKLE-WELLS SYNDROME

REACTIONS (1)
  - AZOOSPERMIA [None]
